FAERS Safety Report 18527391 (Version 1)
Quarter: 2020Q4

REPORT INFORMATION
  Report Type: Spontaneous
  Country: US (occurrence: US)
  Receive Date: 20201120
  Receipt Date: 20201120
  Transmission Date: 20210114
  Serious: Yes (Hospitalization)
  Sender: FDA-Public Use
  Company Number: US-PFIZER INC-2020455342

PATIENT
  Age: 86 Year
  Sex: Male

DRUGS (3)
  1. AZITHROMYCIN ANHYDROUS. [Interacting]
     Active Substance: AZITHROMYCIN ANHYDROUS
     Indication: PNEUMONIA
     Dosage: 2 DF, 1X/DAY 2 TABLETS OF AZITHROMYCIN AND TOOK THEM TOGETHER WITH FLUCONAZOLE DURING 2 NIGHTS)
  2. FLUCONAZOLE. [Suspect]
     Active Substance: FLUCONAZOLE
     Indication: FUNGAL INFECTION
     Dosage: 200 MG, 1X/DAY (7 TABLETS ONE EACH DAY)
  3. FLUCONAZOLE. [Interacting]
     Active Substance: FLUCONAZOLE
     Dosage: UNK, 1X/DAY (2 TABLETS OF AZITHROMYCIN AND TOOK THEM TOGETHER WITH FLUCONAZOLE DURING 2 NIGHTS)

REACTIONS (3)
  - Mouth swelling [Unknown]
  - Drug interaction [Unknown]
  - Lip swelling [Unknown]
